FAERS Safety Report 9108863 (Version 2)
Quarter: 2013Q2

REPORT INFORMATION
  Report Type: Spontaneous
  Country: US (occurrence: US)
  Receive Date: 20130222
  Receipt Date: 20130528
  Transmission Date: 20140414
  Serious: Yes (Other)
  Sender: FDA-Public Use
  Company Number: US-PFIZER INC-2013064237

PATIENT
  Age: 26 Year
  Sex: Female

DRUGS (1)
  1. CELEBREX [Suspect]
     Dosage: 2 CAPSULES (400MG) DAILY

REACTIONS (1)
  - Colon cancer metastatic [Unknown]
